FAERS Safety Report 10885747 (Version 1)
Quarter: 2015Q1

REPORT INFORMATION
  Report Type: Spontaneous
  Country: ES (occurrence: ES)
  Receive Date: 20150304
  Receipt Date: 20150304
  Transmission Date: 20150721
  Serious: Yes (Hospitalization, Other)
  Sender: FDA-Public Use
  Company Number: ES-AMGEN-ESPSP2015018235

PATIENT
  Age: 65 Year
  Sex: Female

DRUGS (4)
  1. IDEOS UNIDIA [Concomitant]
     Dosage: 1 DF, QD
  2. HIDROFEROL [Concomitant]
     Active Substance: CALCIFEDIOL
     Dosage: UNK UNK, QMO
  3. MESTINON [Concomitant]
     Active Substance: PYRIDOSTIGMINE BROMIDE
     Indication: MYASTHENIA GRAVIS
     Dosage: 60 MG, QID
  4. PROLIA [Suspect]
     Active Substance: DENOSUMAB
     Indication: PRODUCT USED FOR UNKNOWN INDICATION
     Dosage: 60 MG, UNK
     Route: 065

REACTIONS (1)
  - Myasthenia gravis [Recovered/Resolved]
